FAERS Safety Report 12622771 (Version 2)
Quarter: 2016Q3

REPORT INFORMATION
  Report Type: Spontaneous
  Country: US (occurrence: US)
  Receive Date: 20160804
  Receipt Date: 20160809
  Transmission Date: 20161109
  Serious: Yes (Other)
  Sender: FDA-Public Use
  Company Number: US-JNJFOC-20160801722

PATIENT
  Sex: Female
  Weight: 54.89 kg

DRUGS (1)
  1. REMICADE [Suspect]
     Active Substance: INFLIXIMAB
     Indication: RHEUMATOID ARTHRITIS
     Dosage: REPORTED AS APPOXIMATELY 1 YEAR TO THE TIME OF THIS REPORT
     Route: 042
     Dates: start: 2015

REACTIONS (1)
  - Renal impairment [Unknown]
